FAERS Safety Report 9554576 (Version 1)
Quarter: 2013Q3

REPORT INFORMATION
  Report Type: Spontaneous
  Country: US (occurrence: US)
  Receive Date: 20130925
  Receipt Date: 20130925
  Transmission Date: 20140515
  Serious: Yes (Other)
  Sender: FDA-Public Use
  Company Number: US-JNJFOC-20130908532

PATIENT
  Age: 52 Year
  Sex: Female
  Weight: 90.72 kg

DRUGS (3)
  1. PEPCID AC [Suspect]
     Indication: GASTROOESOPHAGEAL REFLUX DISEASE
     Route: 048
     Dates: start: 20130908, end: 20130910
  2. NEXIUM [Concomitant]
     Indication: GASTROOESOPHAGEAL REFLUX DISEASE
     Dosage: 15 YEARS
     Route: 065
  3. METOPROLOL [Concomitant]
     Indication: HYPERTENSION
     Route: 065

REACTIONS (5)
  - Chest discomfort [Recovering/Resolving]
  - Medication error [Unknown]
  - Overdose [Unknown]
  - Muscle tightness [Recovering/Resolving]
  - Vomiting [Recovering/Resolving]
